FAERS Safety Report 6535202-1 (Version None)
Quarter: 2010Q1

REPORT INFORMATION
  Report Type: 
  Country: None (occurrence: None)
  Receive Date: 20100113
  Receipt Date: 20100107
  Transmission Date: 20100710
  Serious: Yes (Other)
  Sender: FDA-Public Use
  Company Number: US-ASTRAZENECA-2007UW13923

PATIENT
  Age: 47 Year
  Sex: Male
  Weight: 116.6 kg

DRUGS (54)
  1. SEROQUEL [Suspect]
     Indication: SLEEP DISORDER
     Dosage: 25 TO 300 MG
     Route: 048
     Dates: start: 20030301, end: 20060101
  2. SEROQUEL [Suspect]
     Indication: DEPRESSION
     Dosage: 25 TO 300 MG
     Route: 048
     Dates: start: 20030301, end: 20060101
  3. SEROQUEL [Suspect]
     Indication: SCHIZOPHRENIA
     Dosage: 25 TO 300 MG
     Route: 048
     Dates: start: 20030301, end: 20060101
  4. SEROQUEL [Suspect]
     Dosage: STRENGTH 25 MG TO 200 MG
     Route: 048
     Dates: start: 20030220, end: 20060101
  5. SEROQUEL [Suspect]
     Dosage: STRENGTH 25 MG TO 200 MG
     Route: 048
     Dates: start: 20030220, end: 20060101
  6. SEROQUEL [Suspect]
     Dosage: STRENGTH 25 MG TO 200 MG
     Route: 048
     Dates: start: 20030220, end: 20060101
  7. SEROQUEL [Suspect]
     Dosage: 25 MG, 200 MG
     Route: 048
     Dates: start: 20090101
  8. SEROQUEL [Suspect]
     Dosage: 25 MG, 200 MG
     Route: 048
     Dates: start: 20090101
  9. SEROQUEL [Suspect]
     Dosage: 25 MG, 200 MG
     Route: 048
     Dates: start: 20090101
  10. RISPERDAL [Suspect]
     Indication: DEPRESSION
     Route: 048
     Dates: start: 20040501
  11. RISPERDAL [Suspect]
     Indication: SCHIZOPHRENIA
     Route: 048
     Dates: start: 20040501
  12. RISPERDAL [Suspect]
     Dates: start: 20040525
  13. RISPERDAL [Suspect]
     Dates: start: 20040525
  14. RISPERDAL [Suspect]
     Dates: start: 20040601
  15. RISPERDAL [Suspect]
     Dates: start: 20040601
  16. ZYPREXA [Suspect]
     Indication: DEPRESSION
     Route: 048
     Dates: start: 20010620
  17. ZYPREXA [Suspect]
     Indication: SCHIZOPHRENIA
     Route: 048
     Dates: start: 20010620
  18. ABILIFY [Concomitant]
     Dates: start: 20030325
  19. MINOXIDIL [Concomitant]
     Dates: start: 20010206
  20. WELLBUTRIN SR [Concomitant]
     Dates: start: 20030325
  21. TOPROL-XL [Concomitant]
     Dates: start: 20010731
  22. LISINOPRIL [Concomitant]
     Dates: start: 20010501
  23. CLONIDINE [Concomitant]
     Dates: start: 20011108
  24. FUROSEMIDE [Concomitant]
     Dates: start: 20020104
  25. AVANDIA [Concomitant]
     Dates: start: 20020403
  26. GEMFIBROZIL [Concomitant]
     Dates: start: 20020620
  27. ASPIRIN [Concomitant]
     Dates: start: 20020110
  28. PREVACID [Concomitant]
     Dates: start: 20020826
  29. CIALIS [Concomitant]
     Dates: start: 20050826
  30. INSULIN HUMULIN [Concomitant]
     Route: 058
     Dates: start: 20031014
  31. HYDROCHLOROTHIAZIDE [Concomitant]
     Dates: start: 20050110
  32. LIPITOR [Concomitant]
     Dates: start: 20050317
  33. GLIPIZIDE [Concomitant]
     Dates: start: 20030217
  34. AVELOX [Concomitant]
     Dates: start: 20050428
  35. GABAPENTIN [Concomitant]
     Dates: start: 20050428
  36. NORVASC [Concomitant]
     Dates: start: 20050726
  37. CYCLOBENZAPRINE [Concomitant]
     Dates: start: 20051109
  38. POTASSIUM CHLORIDE [Concomitant]
     Dates: start: 20020112
  39. ALBUTEROL [Concomitant]
     Dosage: STRENGTH- 17 GM, 0.83 MG/ML
     Dates: start: 20010507
  40. ROZEREM [Concomitant]
     Dates: start: 20060814
  41. CITALOPRAM [Concomitant]
     Dates: start: 20070727
  42. ZOLPIDEM TARTRATE [Concomitant]
     Dates: start: 20070727
  43. LORAZEPAM [Concomitant]
     Dates: start: 20070413
  44. SIMVASTATIN [Concomitant]
     Dates: start: 20050311
  45. IPRATROPIUM BROMIDE [Concomitant]
     Dates: start: 20010506
  46. VERAPAMIL [Concomitant]
     Dates: start: 20010501
  47. CARBAMAZEPINE [Concomitant]
     Dates: start: 19990404
  48. ZIPRASIDONE HCL [Concomitant]
     Dates: start: 20030202
  49. CLOZAPINE [Concomitant]
     Dosage: STRENGTH- 1000 / ML
     Dates: start: 20010509
  50. HEPARIN [Concomitant]
     Dates: start: 20010502
  51. CLOZARIL [Concomitant]
  52. HALDOL [Concomitant]
  53. THORAZINE [Concomitant]
  54. TRAZODONE HCL [Concomitant]

REACTIONS (2)
  - DIABETIC NEUROPATHY [None]
  - TYPE 2 DIABETES MELLITUS [None]
